FAERS Safety Report 5542962-5 (Version None)
Quarter: 2007Q4

REPORT INFORMATION
  Report Type: 
  Country: None (occurrence: None)
  Receive Date: 20071210
  Receipt Date: 20071130
  Transmission Date: 20080405
  Serious: Yes (Life-Threatening, Hospitalization, Disabling)
  Sender: FDA-Public Use
  Company Number: US-MERCK-0711USA04183

PATIENT
  Age: 62 Year
  Sex: Male

DRUGS (15)
  1. JANUVIA [Suspect]
     Indication: DIABETES MELLITUS
     Route: 048
     Dates: start: 20071116, end: 20071119
  2. JANUVIA [Suspect]
     Route: 048
     Dates: start: 20071127, end: 20071127
  3. METFORMIN [Concomitant]
     Route: 065
     Dates: start: 20071101
  4. METFORMIN [Concomitant]
     Route: 065
     Dates: start: 20071101
  5. METFORMIN [Concomitant]
     Route: 065
     Dates: end: 20071101
  6. LANTUS [Concomitant]
     Route: 065
  7. LISINOPRIL [Concomitant]
     Route: 065
  8. ACTOS [Concomitant]
     Route: 065
  9. AMLODIPINE BESYLATE [Concomitant]
     Route: 065
  10. FERROUS SULFATE [Concomitant]
     Route: 065
  11. PROPRANOLOL HYDROCHLORIDE [Concomitant]
     Route: 065
  12. SIMVASTATIN [Concomitant]
     Route: 065
  13. GLIPIZIDE [Concomitant]
     Route: 065
  14. PROTONIX [Concomitant]
     Route: 065
  15. LACTULOSE [Concomitant]
     Route: 065

REACTIONS (1)
  - HEPATIC ENCEPHALOPATHY [None]
